FAERS Safety Report 25323724 (Version 2)
Quarter: 2025Q3

REPORT INFORMATION
  Report Type: Report from Study
  Country: US (occurrence: US)
  Receive Date: 20250516
  Receipt Date: 20250703
  Transmission Date: 20251020
  Serious: Yes (Other)
  Sender: BAYER HEALTHCARE PHARMACEUTICALS INC.
  Company Number: US-BAYER-2025A061316

PATIENT
  Age: 74 Year
  Sex: Male

DRUGS (5)
  1. VITRAKVI [Suspect]
     Active Substance: LAROTRECTINIB
     Indication: Neoplasm
     Dosage: 100 MG, BID
     Route: 048
     Dates: start: 20240928
  2. AUGTYRO [Suspect]
     Active Substance: REPOTRECTINIB
     Dates: start: 20250328
  3. AUGTYRO [Suspect]
     Active Substance: REPOTRECTINIB
     Dates: start: 20250430
  4. AUGTYRO [Suspect]
     Active Substance: REPOTRECTINIB
     Dates: start: 20250624
  5. RITALIN [Concomitant]
     Active Substance: METHYLPHENIDATE HYDROCHLORIDE
     Indication: Brain fog

REACTIONS (9)
  - Unresponsive to stimuli [Not Recovered/Not Resolved]
  - Gait inability [Recovering/Resolving]
  - Pain [Recovering/Resolving]
  - Ageusia [Not Recovered/Not Resolved]
  - Tongue discomfort [Not Recovered/Not Resolved]
  - Myalgia [Not Recovered/Not Resolved]
  - Muscular weakness [Recovering/Resolving]
  - Arthritis [Not Recovered/Not Resolved]
  - Drug ineffective [None]
